FAERS Safety Report 20783919 (Version 1)
Quarter: 2022Q2

REPORT INFORMATION
  Report Type: Other
  Country: CZ (occurrence: CZ)
  Receive Date: 20220504
  Receipt Date: 20220504
  Transmission Date: 20220721
  Serious: Yes (Other)
  Sender: FDA-Public Use
  Company Number: CZ-PHARMAAND-2022PHR00145

PATIENT
  Age: 66 Year
  Sex: Female

DRUGS (5)
  1. PEGASYS [Suspect]
     Active Substance: PEGINTERFERON ALFA-2A
     Indication: Myeloproliferative neoplasm
     Dosage: PEGASYS 135 ?G SUBCUTANEOUSLY WEEKLY
     Route: 058
     Dates: start: 20220312, end: 20220319
  2. THROMBOREDUCTIN [Concomitant]
     Indication: Myeloproliferative neoplasm
     Dosage: UNK
     Dates: start: 2011
  3. OMEPRAZOLE [Concomitant]
     Active Substance: OMEPRAZOLE
     Indication: Prophylaxis against gastrointestinal ulcer
     Dosage: UNK
     Dates: start: 20100211
  4. ANOPRYIN [Concomitant]
     Indication: Thrombocytosis
     Dosage: UNK
     Dates: start: 2015
  5. ANOPRYIN [Concomitant]
     Indication: Myeloproliferative neoplasm

REACTIONS (6)
  - Mental disorder [Recovering/Resolving]
  - Myalgia [Recovering/Resolving]
  - Arthralgia [Recovering/Resolving]
  - Pyrexia [Recovering/Resolving]
  - Influenza like illness [Recovering/Resolving]
  - Off label use [Recovered/Resolved]

NARRATIVE: CASE EVENT DATE: 20220312
